FAERS Safety Report 13966069 (Version 1)
Quarter: 2017Q3

REPORT INFORMATION
  Report Type: Report from Study
  Country: US (occurrence: US)
  Receive Date: 20170913
  Receipt Date: 20170913
  Transmission Date: 20171128
  Serious: Yes (Hospitalization)
  Sender: FDA-Public Use
  Company Number: US-EXELIXIS-CABO-17010468

PATIENT
  Age: 81 Year
  Sex: Male

DRUGS (1)
  1. CABOMETYX [Suspect]
     Active Substance: CABOZANTINIB S-MALATE
     Indication: RENAL CANCER
     Dosage: 20 MG, QD
     Route: 048
     Dates: start: 20170302, end: 20170827

REACTIONS (7)
  - Diarrhoea [Recovering/Resolving]
  - Palmar-plantar erythrodysaesthesia syndrome [Unknown]
  - Ocular hyperaemia [Unknown]
  - Fatigue [Unknown]
  - Eye irritation [Unknown]
  - Pneumonia [Unknown]
  - Asthenia [Unknown]

NARRATIVE: CASE EVENT DATE: 20170827
